FAERS Safety Report 17161996 (Version 1)
Quarter: 2019Q4

REPORT INFORMATION
  Report Type: Spontaneous
  Country: US (occurrence: US)
  Receive Date: 20191122
  Receipt Date: 20191122
  Transmission Date: 20200122
  Serious: No
  Sender: FDA-Public Use
  Company Number: None

PATIENT
  Age: 32 Year
  Sex: Male

DRUGS (1)
  1. METHOTREXATE 2.5MG TAB [Suspect]
     Active Substance: METHOTREXATE
     Dosage: OTHER
     Route: 048
     Dates: start: 201909, end: 201909

REACTIONS (2)
  - Malaise [None]
  - Nausea [None]

NARRATIVE: CASE EVENT DATE: 20190915
